FAERS Safety Report 25967692 (Version 1)
Quarter: 2025Q4

REPORT INFORMATION
  Report Type: Spontaneous
  Country: EU (occurrence: EU)
  Receive Date: 20251028
  Receipt Date: 20251028
  Transmission Date: 20260117
  Serious: Yes (Hospitalization, Other)
  Sender: AUROBINDO
  Company Number: EU-AEMPS-1759442

PATIENT
  Age: 46 Year
  Sex: Male

DRUGS (4)
  1. OXALIPLATIN [Suspect]
     Active Substance: OXALIPLATIN
     Indication: Adenocarcinoma gastric
     Dosage: 85 MILLIGRAM/SQ. METER, CYCLICAL
     Route: 042
     Dates: start: 20250618, end: 20250723
  2. KEYTRUDA [Suspect]
     Active Substance: PEMBROLIZUMAB
     Indication: Adenocarcinoma gastric
     Dosage: 2 MILLIGRAM/KILOGRAM, CYCLICAL
     Route: 042
     Dates: start: 20250702, end: 20250723
  3. FLUOROURACIL [Suspect]
     Active Substance: FLUOROURACIL
     Indication: Adenocarcinoma gastric
     Dosage: 400 MILLIGRAM/SQ. METER, CYCLICAL
     Route: 042
     Dates: start: 20250618, end: 20250723
  4. LEUCOVORIN CALCIUM [Concomitant]
     Active Substance: LEUCOVORIN CALCIUM
     Indication: Adenocarcinoma gastric
     Dosage: 400 MILLIGRAM/SQ. METER
     Route: 042
     Dates: start: 20250618

REACTIONS (3)
  - Acute kidney injury [Recovering/Resolving]
  - Immune-mediated nephritis [Recovering/Resolving]
  - Immune-mediated dermatitis [Recovered/Resolved]

NARRATIVE: CASE EVENT DATE: 20250806
